FAERS Safety Report 16747494 (Version 3)
Quarter: 2019Q4

REPORT INFORMATION
  Report Type: Report from Study
  Country: US (occurrence: US)
  Receive Date: 20190827
  Receipt Date: 20191002
  Transmission Date: 20200122
  Serious: Yes (Hospitalization, Other)
  Sender: FDA-Public Use
  Company Number: US-ACTELION-A-NJ2018-167543

PATIENT
  Age: 58 Year
  Sex: Female

DRUGS (6)
  1. TADALAFIL. [Concomitant]
     Active Substance: TADALAFIL
  2. UPTRAVI [Suspect]
     Active Substance: SELEXIPAG
     Dosage: 1000 UNK
     Route: 048
  3. OPSUMIT [Suspect]
     Active Substance: MACITENTAN
     Indication: PULMONARY ARTERIAL HYPERTENSION
     Dosage: 10 MG, QD
     Route: 048
     Dates: start: 20140819
  4. PLAVIX [Suspect]
     Active Substance: CLOPIDOGREL BISULFATE
     Indication: PRODUCT USED FOR UNKNOWN INDICATION
     Dosage: UNK
     Route: 048
  5. ADEMPAS [Concomitant]
     Active Substance: RIOCIGUAT
  6. UPTRAVI [Suspect]
     Active Substance: SELEXIPAG
     Indication: PULMONARY ARTERIAL HYPERTENSION
     Dosage: 800 MCG, BID
     Route: 048
     Dates: start: 20190820

REACTIONS (15)
  - Anxiety [Unknown]
  - Drug interaction [Unknown]
  - Vomiting [Recovering/Resolving]
  - Depression [Unknown]
  - Flushing [Recovering/Resolving]
  - Swelling face [Unknown]
  - Allergy to chemicals [Unknown]
  - Headache [Recovering/Resolving]
  - Dizziness [Recovering/Resolving]
  - Tooth fracture [Unknown]
  - Weight increased [Unknown]
  - Hyperhidrosis [Recovering/Resolving]
  - Dyspnoea [Unknown]
  - Nausea [Recovering/Resolving]
  - Infection [Unknown]

NARRATIVE: CASE EVENT DATE: 20190917
